FAERS Safety Report 12866374 (Version 3)
Quarter: 2017Q1

REPORT INFORMATION
  Report Type: Report from Study
  Country: IL (occurrence: IL)
  Receive Date: 20161020
  Receipt Date: 20170303
  Transmission Date: 20170428
  Serious: Yes (Life-Threatening, Hospitalization)
  Sender: FDA-Public Use
  Company Number: IL-ROCHE-1696525

PATIENT
  Age: 62 Year
  Sex: Male
  Weight: 79 kg

DRUGS (47)
  1. PREDNISON [Concomitant]
     Active Substance: PREDNISONE
     Indication: PEMPHIGUS
     Route: 048
     Dates: start: 20151116, end: 20151121
  2. LANTUS [Concomitant]
     Active Substance: INSULIN GLARGINE
     Dosage: DRUG NAME REPORTED AS INSULIN LANTUS
     Route: 058
     Dates: start: 20151120, end: 20151205
  3. APIDRA [Concomitant]
     Active Substance: INSULIN GLULISINE
     Route: 058
     Dates: start: 20151118, end: 20151118
  4. APIDRA [Concomitant]
     Active Substance: INSULIN GLULISINE
     Route: 058
     Dates: start: 20151120, end: 20151122
  5. APIDRA [Concomitant]
     Active Substance: INSULIN GLULISINE
     Route: 058
     Dates: start: 20151208, end: 20151208
  6. APIDRA [Concomitant]
     Active Substance: INSULIN GLULISINE
     Dosage: DAILY DOSE 10 UNITS
     Route: 058
     Dates: start: 20151213, end: 20151213
  7. MYCOPHENOLATE MOFETIL. [Suspect]
     Active Substance: MYCOPHENOLATE MOFETIL
     Indication: PEMPHIGUS
     Dosage: MOST RECENT DOSE PRIOR TO THE EVENT: 15/JAN/2016, 26/JAN/2016 AT 10: 00, 23/FEB/2016 AT 22:00
     Route: 048
     Dates: start: 20151216
  8. PREDNISON [Concomitant]
     Active Substance: PREDNISONE
     Route: 048
     Dates: start: 20151224, end: 20151229
  9. APIDRA [Concomitant]
     Active Substance: INSULIN GLULISINE
     Dosage: DRUG NAME REPORTED AS INSULIN APIDRA
     Route: 058
     Dates: start: 20151106, end: 20151106
  10. APIDRA [Concomitant]
     Active Substance: INSULIN GLULISINE
     Route: 058
     Dates: start: 20151129, end: 20151129
  11. APIDRA [Concomitant]
     Active Substance: INSULIN GLULISINE
     Route: 058
     Dates: start: 20151202, end: 20151202
  12. APIDRA [Concomitant]
     Active Substance: INSULIN GLULISINE
     Route: 058
     Dates: start: 20151204, end: 20151204
  13. APIDRA [Concomitant]
     Active Substance: INSULIN GLULISINE
     Route: 058
     Dates: start: 20151207, end: 20151208
  14. APIDRA [Concomitant]
     Active Substance: INSULIN GLULISINE
     Dosage: DOSE 6 UNITS
     Route: 058
     Dates: start: 20151212, end: 20151212
  15. PREDNISON [Concomitant]
     Active Substance: PREDNISONE
     Indication: PEMPHIGUS
     Route: 048
     Dates: start: 20151105, end: 20151106
  16. APIDRA [Concomitant]
     Active Substance: INSULIN GLULISINE
     Route: 058
     Dates: start: 20151206, end: 20151206
  17. APIDRA [Concomitant]
     Active Substance: INSULIN GLULISINE
     Dosage: DAILY DOSE 14 UNITS
     Route: 058
     Dates: start: 20151210, end: 20151210
  18. BONDORMIN [Concomitant]
     Active Substance: BROTIZOLAM
     Route: 048
     Dates: start: 20151127
  19. LOSEC [Concomitant]
     Active Substance: OMEPRAZOLE
     Route: 048
     Dates: start: 20151105
  20. SIMVACOR [Concomitant]
     Active Substance: SIMVASTATIN
     Route: 048
     Dates: start: 20151105
  21. PREDNISON [Concomitant]
     Active Substance: PREDNISONE
     Indication: PEMPHIGUS
     Route: 048
     Dates: start: 20151122, end: 20151202
  22. APIDRA [Concomitant]
     Active Substance: INSULIN GLULISINE
     Route: 058
     Dates: start: 20151110, end: 20151110
  23. APIDRA [Concomitant]
     Active Substance: INSULIN GLULISINE
     Route: 058
     Dates: start: 20151116, end: 20151117
  24. APIDRA [Concomitant]
     Active Substance: INSULIN GLULISINE
     Route: 058
     Dates: start: 20151126, end: 20151126
  25. APIDRA [Concomitant]
     Active Substance: INSULIN GLULISINE
     Dosage: DAILY DOSE 10 UNITS
     Route: 058
     Dates: start: 20151211, end: 20151211
  26. APIDRA [Concomitant]
     Active Substance: INSULIN GLULISINE
     Dosage: DAILY DOSE 14 UNTS
     Route: 058
     Dates: start: 20151215, end: 20151216
  27. APIDRA [Concomitant]
     Active Substance: INSULIN GLULISINE
     Dosage: DAILY DOSE 12 UNITS
     Route: 058
     Dates: start: 20151213, end: 20151213
  28. STUNARONE [Concomitant]
     Route: 048
     Dates: start: 20151105
  29. PREDNISON [Concomitant]
     Active Substance: PREDNISONE
     Route: 048
     Dates: start: 20151216, end: 20151223
  30. APIDRA [Concomitant]
     Active Substance: INSULIN GLULISINE
     Route: 058
     Dates: start: 20151107, end: 20151107
  31. APIDRA [Concomitant]
     Active Substance: INSULIN GLULISINE
     Route: 058
     Dates: start: 20151109, end: 20151109
  32. APIDRA [Concomitant]
     Active Substance: INSULIN GLULISINE
     Route: 058
     Dates: start: 20151112, end: 20151112
  33. APIDRA [Concomitant]
     Active Substance: INSULIN GLULISINE
     Route: 058
     Dates: start: 20151205, end: 20151205
  34. APIDRA [Concomitant]
     Active Substance: INSULIN GLULISINE
     Dosage: DAILY DOSE 28 UNITS
     Route: 058
     Dates: start: 20151209, end: 20151209
  35. APIDRA [Concomitant]
     Active Substance: INSULIN GLULISINE
     Dosage: DAILY DOSE 8 UNITS
     Route: 058
     Dates: start: 20151214, end: 20151214
  36. BACTROBAN [Concomitant]
     Active Substance: MUPIROCIN\MUPIROCIN CALCIUM
     Indication: PEMPHIGUS
     Dosage: DAILY DOSE 2 UNITS
     Route: 061
     Dates: start: 20151127, end: 20151209
  37. PREDNISON [Concomitant]
     Active Substance: PREDNISONE
     Indication: PEMPHIGUS
     Route: 048
     Dates: start: 20151107, end: 20151115
  38. PREDNISON [Concomitant]
     Active Substance: PREDNISONE
     Route: 048
     Dates: start: 20151213, end: 20151215
  39. ORACORT (ISRAEL) [Concomitant]
     Indication: PEMPHIGUS
     Dosage: DAILY DOSE 1 OTHER
     Route: 061
     Dates: start: 20151110
  40. LANTUS [Concomitant]
     Active Substance: INSULIN GLARGINE
     Dosage: DRUG NAME REPORTED AS INSULIN LANTUS DAILY DOSE 18 UNITS
     Route: 058
     Dates: start: 20151206
  41. APIDRA [Concomitant]
     Active Substance: INSULIN GLULISINE
     Route: 058
     Dates: start: 20151128, end: 20151128
  42. APIDRA [Concomitant]
     Active Substance: INSULIN GLULISINE
     Route: 058
     Dates: start: 20151130, end: 20151130
  43. APIDRA [Concomitant]
     Active Substance: INSULIN GLULISINE
     Dosage: DOSE 28 UNITS
     Route: 058
     Dates: start: 20151209, end: 20151209
  44. PREDNISON [Concomitant]
     Active Substance: PREDNISONE
     Route: 048
     Dates: start: 20151209, end: 20151212
  45. APIDRA [Concomitant]
     Active Substance: INSULIN GLULISINE
     Route: 058
     Dates: start: 20151119, end: 20151119
  46. PREDNISON [Concomitant]
     Active Substance: PREDNISONE
     Route: 048
     Dates: start: 20151203, end: 20151208
  47. PLACEBO [Suspect]
     Active Substance: UNSPECIFIED INGREDIENT
     Indication: PEMPHIGUS
     Route: 042
     Dates: start: 20151216

REACTIONS (5)
  - Dyspnoea [Recovered/Resolved]
  - Pneumonia [Recovered/Resolved]
  - Myocardial infarction [Recovered/Resolved]
  - Pulmonary embolism [Recovered/Resolved]
  - H1N1 influenza [Recovered/Resolved]

NARRATIVE: CASE EVENT DATE: 20160101
